FAERS Safety Report 24571654 (Version 4)
Quarter: 2025Q1

REPORT INFORMATION
  Report Type: Spontaneous
  Country: US (occurrence: US)
  Receive Date: 20241101
  Receipt Date: 20250306
  Transmission Date: 20250408
  Serious: No
  Sender: BLUEPRINT MEDICINES
  Company Number: US-Blueprint Medicines Corporation-5162

PATIENT
  Age: 39 Year
  Sex: Female

DRUGS (2)
  1. AYVAKIT [Suspect]
     Active Substance: AVAPRITINIB
     Indication: Haematopoietic neoplasm
     Route: 065
     Dates: start: 20240916
  2. AYVAKIT [Suspect]
     Active Substance: AVAPRITINIB
     Indication: Mastocytoma
     Route: 065
     Dates: start: 20240916, end: 20250117

REACTIONS (8)
  - White blood cell count decreased [Unknown]
  - Neutrophil count decreased [Unknown]
  - Aphasia [Unknown]
  - Headache [Unknown]
  - Tearfulness [Unknown]
  - Memory impairment [Unknown]
  - Lacrimation increased [Unknown]
  - Adverse drug reaction [Unknown]
